FAERS Safety Report 7945320-9 (Version None)
Quarter: 2011Q4

REPORT INFORMATION
  Report Type: 
  Country: None (occurrence: None)
  Receive Date: 20111129
  Receipt Date: 20110204
  Transmission Date: 20120403
  Serious: No
  Sender: FDA-Public Use
  Company Number: US-GLAXOSMITHKLINE-A0911981A

PATIENT
  Age: 52 Year
  Sex: Female

DRUGS (7)
  1. WELLBUTRIN SR [Suspect]
     Indication: TOBACCO USER
     Dosage: 150MG TWICE PER DAY
     Route: 048
     Dates: start: 20020101, end: 20101101
  2. FUROSEMIDE [Concomitant]
  3. TOPROL-XL [Concomitant]
  4. UNKNOWN MEDICATION [Concomitant]
  5. DIGOXIN [Concomitant]
  6. XANAX [Concomitant]
  7. VITAMIN TAB [Concomitant]

REACTIONS (1)
  - APATHY [None]
